FAERS Safety Report 23168149 (Version 5)
Quarter: 2024Q1

REPORT INFORMATION
  Report Type: Report from Study
  Country: US (occurrence: US)
  Receive Date: 20231109
  Receipt Date: 20240208
  Transmission Date: 20240410
  Serious: Yes (Other)
  Sender: FDA-Public Use
  Company Number: US-JNJFOC-20231033320

PATIENT
  Age: 75 Year
  Sex: Female

DRUGS (23)
  1. MACITENTAN [Suspect]
     Active Substance: MACITENTAN
     Indication: Pulmonary arterial hypertension
     Dosage: STARTED OVER A MONTH AGO OR 5 WEEKS AGO MAYBE
     Route: 048
     Dates: start: 20230124
  2. MACITENTAN [Suspect]
     Active Substance: MACITENTAN
     Dosage: 1 PILL 10 MG EVERY OTHER DAY (10 MG 3 WEEKLY - 12-OCT-2023)
     Route: 048
  3. MACITENTAN [Suspect]
     Active Substance: MACITENTAN
     Dosage: START DATE: MAY OR JUNE-2023, 10 MG EVERY OTHER DAY THREE TIMES A WEEK
     Route: 048
  4. FOSAMAX [Concomitant]
     Active Substance: ALENDRONATE SODIUM
     Dosage: TAKE ONE TABLET BY MOUTH EVERY 7 DAYS WITH A FULL GLASS OF WATER, ON AN EMPTY STOMACH. DONOT LIE DOW
     Route: 048
  5. SINGULAIR [Concomitant]
     Active Substance: MONTELUKAST SODIUM
     Dosage: TAKE ONE TABLET BY MOUTH NIGHTLY
     Route: 048
  6. PRAVACHOL [Concomitant]
     Active Substance: PRAVASTATIN SODIUM
     Dosage: TAKE ONE TABLET BY MOUTH NIGHTLY
     Route: 048
  7. UMECLIDINIUM BROMIDE [Concomitant]
     Active Substance: UMECLIDINIUM BROMIDE
     Dosage: INHALE 1 PUFF INTO LUNGS DAILY
  8. CARDIZEM CD [Concomitant]
     Active Substance: DILTIAZEM HYDROCHLORIDE
     Dosage: TAKE 1 CAPSULE BY MOUTH DAILY
     Route: 048
  9. INSULIN GLARGINE [Concomitant]
     Active Substance: INSULIN GLARGINE
     Dosage: 100 UNIT/ML INJECTION?INJECT 28 UNITS INTO THE SKIN NIGHTLY
  10. INSULIN LISPRO [Concomitant]
     Active Substance: INSULIN LISPRO
     Dosage: 10-20 UNITS INTO SKIN 3 TIMES DAILY (WITH MEALS). DISPENSE PENS
  11. METAMUCIL THERAPY FOR REGULARITY [Concomitant]
     Active Substance: PSYLLIUM HUSK
     Dosage: TAKE 3 CAPSULES BY MOUTH DAILY AS NEEDED
  12. BUMEX [Concomitant]
     Active Substance: BUMETANIDE
     Indication: Cardiac failure
     Dosage: TAKE 1 TABLET BY MOUTH DAILY
     Route: 048
     Dates: start: 20221221
  13. BUMEX [Concomitant]
     Active Substance: BUMETANIDE
     Indication: Oedema
  14. NASACORT AQ [Concomitant]
     Active Substance: TRIAMCINOLONE ACETONIDE
     Dosage: 2 SPRAYS BY EACH NARE ROUTE DAILY
     Route: 045
  15. PROVENTIL [Concomitant]
     Active Substance: ALBUTEROL
     Indication: Wheezing
     Dosage: TAKE 3 ML BY NEBULIZATION EVERY 4 HOURS AS NEEDED
  16. PROVENTIL [Concomitant]
     Active Substance: ALBUTEROL
     Indication: Dyspnoea
  17. PRINIVIL [Concomitant]
     Active Substance: LISINOPRIL
     Dosage: TAKE 1 TABLET BY MOUTH 2 TIMES DAILY
  18. ZESTRIL [Concomitant]
     Active Substance: LISINOPRIL
     Dosage: TAKE 1 TABLET BY MOUTH 2 TIMES DAILY
  19. ALBUTEROL [Concomitant]
     Active Substance: ALBUTEROL
     Indication: Wheezing
     Dosage: INHALE 2 PUFFS INTO LUNGS EVERY 4 HOURS AS NEEDED
  20. ALBUTEROL [Concomitant]
     Active Substance: ALBUTEROL
     Indication: Dyspnoea
  21. OXYGEN [Concomitant]
     Active Substance: OXYGEN
  22. ACETAMINOPHEN [Concomitant]
     Active Substance: ACETAMINOPHEN
     Dosage: TAKE 650 MG BY MOUTH AS NEEDED. MAY TAKE 2 TABLETS UP TO THREE TIMES PER DAY AS NEEDED FOR PAIN - DO
     Route: 048
  23. ASPIRIN [Concomitant]
     Active Substance: ASPIRIN
     Dosage: TAKE 1 TABLET BY MOUTH DAILY
     Route: 048

REACTIONS (6)
  - Dizziness [Unknown]
  - Nausea [Recovering/Resolving]
  - Dyspnoea exertional [Unknown]
  - Nasal congestion [Recovering/Resolving]
  - Oxygen saturation decreased [Unknown]
  - Off label use [Unknown]

NARRATIVE: CASE EVENT DATE: 20230101
